FAERS Safety Report 8593627-7 (Version None)
Quarter: 2012Q3

REPORT INFORMATION
  Report Type: 
  Country: None (occurrence: None)
  Receive Date: 20120814
  Receipt Date: 20120806
  Transmission Date: 20120928
  Serious: Yes (Hospitalization, Other)
  Sender: FDA-Public Use
  Company Number: US-PFIZER INC-2011284389

PATIENT
  Age: 62 Year
  Sex: Female

DRUGS (2)
  1. METHOTREXATE SODIUM [Suspect]
     Dosage: UNK
     Dates: start: 20081201
  2. ENBREL [Suspect]
     Indication: RHEUMATOID ARTHRITIS
     Dosage: 50 MG, QWK
     Dates: start: 20091106

REACTIONS (5)
  - RECTAL HAEMORRHAGE [None]
  - EPISTAXIS [None]
  - HEART RATE INCREASED [None]
  - PANCYTOPENIA [None]
  - INJECTION SITE PAIN [None]
